FAERS Safety Report 9276484 (Version 3)
Quarter: 2013Q2

REPORT INFORMATION
  Report Type: Report from Study
  Country: DE (occurrence: DE)
  Receive Date: 20130507
  Receipt Date: 20130610
  Transmission Date: 20140414
  Serious: Yes (Hospitalization)
  Sender: FDA-Public Use
  Company Number: DE-JNJFOC-20130417198

PATIENT
  Sex: Male
  Weight: 93 kg

DRUGS (6)
  1. REMICADE [Suspect]
     Indication: COLITIS ULCERATIVE
     Route: 042
     Dates: start: 20091208, end: 20100526
  2. PENTASA [Concomitant]
     Indication: COLITIS ULCERATIVE
     Route: 048
     Dates: start: 20100526
  3. LOPERAMIDE [Concomitant]
     Indication: COLITIS ULCERATIVE
     Route: 048
     Dates: start: 20101222
  4. DOLO POSTERINE [Concomitant]
     Indication: COLITIS ULCERATIVE
     Route: 048
     Dates: start: 20110601
  5. TINCTURE OF OPIUM [Concomitant]
     Indication: COLITIS ULCERATIVE
     Dosage: 2000 DROPS (DOSE SCHEDULE 5-5-5)
     Route: 048
     Dates: start: 20110826
  6. ALL OTHER THERAPEUTIC PRODUCTS [Concomitant]
     Indication: COLITIS ULCERATIVE
     Dosage: AS NECESSARY
     Route: 048
     Dates: start: 20111006

REACTIONS (1)
  - Proctitis [Recovering/Resolving]
